FAERS Safety Report 7119575-7 (Version None)
Quarter: 2010Q4

REPORT INFORMATION
  Report Type: 
  Country: None (occurrence: None)
  Receive Date: 20101123
  Receipt Date: 20101111
  Transmission Date: 20110411
  Serious: Yes (Hospitalization)
  Sender: FDA-Public Use
  Company Number: BR-AMGEN-QUU305509

PATIENT

DRUGS (10)
  1. DENOSUMAB [Suspect]
     Indication: METASTASES TO BONE
     Dosage: UNK BLINDED, Q4WK
     Route: 058
     Dates: start: 20080708, end: 20080805
  2. HALOPERIDOL [Concomitant]
     Dosage: UNK UNK, QD
     Route: 048
     Dates: start: 20080909, end: 20080909
  3. SALINE MIXTURE [Concomitant]
     Dosage: 2000 ML, QD
     Route: 042
     Dates: start: 20080908, end: 20080912
  4. LOPERAMIDE HYDROCHLORIDE [Concomitant]
     Dosage: 2 MG, Q12H
     Route: 048
     Dates: start: 20080804, end: 20080806
  5. CALCIUM [Concomitant]
     Dosage: 600 MG, QD
     Route: 048
     Dates: start: 20080708
  6. ERGOCALCIFEROL [Concomitant]
     Dosage: 400 IU, QD
     Route: 048
     Dates: start: 20080709
  7. CAPTOPRIL [Concomitant]
     Dosage: 25 MG, UNK
     Route: 048
     Dates: start: 20080829, end: 20080903
  8. FUROSEMIDE [Concomitant]
     Dosage: 40 MG, UNK
     Route: 048
     Dates: start: 20080829, end: 20080903
  9. GLUCOSE [Concomitant]
     Dosage: 160 ML, QD
     Route: 042
     Dates: start: 20080908, end: 20080912
  10. POTASSIUM CHLORIDE [Concomitant]
     Dosage: 40 ML, QD
     Route: 042
     Dates: start: 20080908, end: 20080912

REACTIONS (2)
  - DIASTOLIC DYSFUNCTION [None]
  - RESPIRATORY FAILURE [None]
